FAERS Safety Report 7434810-3 (Version None)
Quarter: 2011Q2

REPORT INFORMATION
  Report Type: 
  Country: None (occurrence: None)
  Receive Date: 20110425
  Receipt Date: 20110418
  Transmission Date: 20111010
  Serious: Yes (Other)
  Sender: FDA-Public Use
  Company Number: US-PFIZER INC-2011084844

PATIENT
  Sex: Female
  Weight: 54.4 kg

DRUGS (4)
  1. CELEBREX [Suspect]
     Indication: ARTHRALGIA
     Dosage: 200 MG, 1X/DAY
     Route: 048
     Dates: start: 20110326, end: 20110413
  2. METHOTREXATE [Concomitant]
     Indication: INFLAMMATION
     Dosage: UNK
     Route: 048
  3. CELEBREX [Suspect]
     Dosage: 200 MG, 2X/DAY
     Route: 048
     Dates: start: 20110414, end: 20110416
  4. FOLIC ACID [Concomitant]
     Dosage: 1 MG, 1X/DAY
     Route: 048

REACTIONS (3)
  - URTICARIA [None]
  - HYPERSENSITIVITY [None]
  - ARTHRALGIA [None]
